FAERS Safety Report 7301512-3 (Version None)
Quarter: 2011Q1

REPORT INFORMATION
  Report Type: 
  Country: None (occurrence: None)
  Receive Date: 20110218
  Receipt Date: 20100920
  Transmission Date: 20110831
  Serious: No
  Sender: FDA-Public Use
  Company Number: US-BRISTOL-MYERS SQUIBB COMPANY-15296478

PATIENT
  Age: 39 Year
  Sex: Female

DRUGS (5)
  1. KENALOG [Suspect]
     Route: 030
     Dates: start: 20100319
  2. OMNARIS [Concomitant]
  3. AZITHROMYCIN [Concomitant]
  4. MULTIVITAMIN [Concomitant]
  5. ALLEGRA D 24 HOUR [Concomitant]

REACTIONS (1)
  - INJECTION SITE ATROPHY [None]
